FAERS Safety Report 11098778 (Version 1)
Quarter: 2015Q2

REPORT INFORMATION
  Report Type: Spontaneous
  Country: US (occurrence: US)
  Receive Date: 20150507
  Receipt Date: 20150507
  Transmission Date: 20150821
  Serious: Yes (Hospitalization)
  Sender: FDA-Public Use
  Company Number: US-AMGEN-USASP2015043289

PATIENT
  Age: 66 Year
  Sex: Female

DRUGS (1)
  1. ENBREL [Suspect]
     Active Substance: ETANERCEPT
     Indication: PSORIATIC ARTHROPATHY
     Dosage: 50 MG, QWK
     Route: 065
     Dates: start: 20120630, end: 201411

REACTIONS (4)
  - Chondropathy [Recovered/Resolved]
  - Meniscus injury [Recovered/Resolved]
  - Back pain [Not Recovered/Not Resolved]
  - Procedural pain [Not Recovered/Not Resolved]

NARRATIVE: CASE EVENT DATE: 201412
